FAERS Safety Report 18108019 (Version 1)
Quarter: 2020Q3

REPORT INFORMATION
  Report Type: Spontaneous
  Country: US (occurrence: US)
  Receive Date: 20200803
  Receipt Date: 20200803
  Transmission Date: 20201103
  Serious: Yes (Disabling, Other)
  Sender: FDA-Public Use
  Company Number: US-PURDUE-USA-2020-0159356

PATIENT
  Age: 59 Year
  Sex: Male

DRUGS (6)
  1. ASCORBIC ACID. [Concomitant]
     Active Substance: ASCORBIC ACID
     Indication: PRODUCT USED FOR UNKNOWN INDICATION
     Dosage: 500 MG,TABLET
     Route: 048
     Dates: start: 20151002
  2. PAPAVERINE [Concomitant]
     Active Substance: PAPAVERINE
     Indication: ERECTILE DYSFUNCTION
     Dosage: UNK
     Route: 017
     Dates: start: 20151210
  3. HYDROCODONE BITARTRATE AND ACETAMINOPHEN [Suspect]
     Active Substance: ACETAMINOPHEN\HYDROCODONE BITARTRATE
     Indication: SPINAL CORD INJURY
     Dosage: 10?325 MG, TABLET
     Route: 048
     Dates: start: 20160421
  4. HYDROCODONE BITARTRATE AND ACETAMINOPHEN [Suspect]
     Active Substance: ACETAMINOPHEN\HYDROCODONE BITARTRATE
     Indication: CANCER PAIN
  5. ONDANSETRON [Concomitant]
     Active Substance: ONDANSETRON
     Indication: NAUSEA
     Dosage: DISSOLVE 1 TABLET IN MOUTH EVERY 4 TO 6 HOURS AS NEEDED
     Route: 048
     Dates: start: 20160223
  6. ONDANSETRON [Concomitant]
     Active Substance: ONDANSETRON
     Indication: VOMITING

REACTIONS (5)
  - Disability [Unknown]
  - Myocardial infarction [Unknown]
  - Malaise [Unknown]
  - Drug dependence [Unknown]
  - Troponin increased [Unknown]

NARRATIVE: CASE EVENT DATE: 20170326
